FAERS Safety Report 7599092-0 (Version None)
Quarter: 2011Q3

REPORT INFORMATION
  Report Type: 
  Country: None (occurrence: None)
  Receive Date: 20110711
  Receipt Date: 20110127
  Transmission Date: 20111222
  Serious: Yes (Death, Other)
  Sender: FDA-Public Use
  Company Number: US-BAYER-201011345NA

PATIENT
  Age: 68 Year
  Sex: Male
  Weight: 95 kg

DRUGS (15)
  1. LASIX [Concomitant]
     Dosage: 20 MG
     Route: 042
     Dates: start: 20070105, end: 20070105
  2. CALCIUM CHLORIDE [Concomitant]
     Dosage: 1 GRAM
     Route: 042
     Dates: start: 20070105, end: 20070105
  3. TRASYLOL [Suspect]
     Dosage: 200ML, FOLLOWED BY ANOTHER 200 ML.
     Route: 042
     Dates: start: 20070105, end: 20070105
  4. SODIUM BICARBONATE [Concomitant]
     Dosage: UNK
     Dates: start: 20070105, end: 20070105
  5. MAGNESIUM [Concomitant]
     Dosage: 2 GRAM
     Route: 042
     Dates: start: 20070105, end: 20070105
  6. AMICAR [Concomitant]
     Dosage: UNK
     Dates: start: 20070105, end: 20070105
  7. VANCOMYCIN [Concomitant]
     Dosage: UNK
     Route: 042
     Dates: start: 20070105, end: 20070105
  8. LOVASTATIN [Concomitant]
     Route: 048
  9. VERSED [Concomitant]
     Dosage: UNK
     Route: 042
     Dates: start: 20070105, end: 20070105
  10. ANCEF [Concomitant]
     Dosage: UNK
     Route: 042
     Dates: start: 20070105, end: 20070105
  11. HEPARIN [Concomitant]
     Dosage: 30000 UNITS
     Route: 042
     Dates: start: 20070105, end: 20070105
  12. DOPAMINE HCL [Concomitant]
     Dosage: UNK
     Dates: start: 20070105, end: 20070105
  13. REGULAR INSULIN [Concomitant]
     Dosage: 10 UNITS
     Dates: start: 20070105, end: 20070105
  14. TRASYLOL [Suspect]
     Indication: CORONARY ARTERY BYPASS
     Dosage: 1 ML, ONCE, INITIAL TEST DOSE
     Route: 042
     Dates: start: 20070105, end: 20070105
  15. TRIDIL [Concomitant]
     Dosage: UNK
     Route: 042
     Dates: start: 20070105, end: 20070105

REACTIONS (14)
  - RENAL INJURY [None]
  - DEATH [None]
  - UNEVALUABLE EVENT [None]
  - DEPRESSION [None]
  - ANHEDONIA [None]
  - INJURY [None]
  - RENAL IMPAIRMENT [None]
  - ANXIETY [None]
  - FEAR [None]
  - CARDIAC DISORDER [None]
  - RENAL FAILURE [None]
  - CEREBROVASCULAR ACCIDENT [None]
  - ORGAN FAILURE [None]
  - PAIN [None]
